FAERS Safety Report 4853563-6 (Version None)
Quarter: 2005Q4

REPORT INFORMATION
  Report Type: 
  Country: None (occurrence: None)
  Receive Date: 20051209
  Receipt Date: 20051129
  Transmission Date: 20060501
  Serious: Yes (Hospitalization, Other)
  Sender: FDA-Public Use
  Company Number: 2005141239

PATIENT
  Age: 48 Year
  Sex: Female

DRUGS (4)
  1. DILANTIN KAPSEAL [Suspect]
     Indication: ILL-DEFINED DISORDER
     Dosage: 300 MG (300 MG, 3 IN 1 D), ORAL
     Route: 048
     Dates: start: 19990101
  2. TOPROL-XL [Concomitant]
  3. COMBIVENT [Concomitant]
  4. GUAIFENEX DM (DEXTROMETHORPHAN HYDROBROMIDE, GUAIFENESIN) [Concomitant]

REACTIONS (3)
  - HYPERTENSION [None]
  - MYOCARDIAL INFARCTION [None]
  - PALPITATIONS [None]
